FAERS Safety Report 9538568 (Version 1)
Quarter: 2013Q2

REPORT INFORMATION
  Report Type: Spontaneous
  Country: US (occurrence: None)
  Receive Date: 20130507
  Receipt Date: 20130507
  Transmission Date: 20140414
  Serious: No
  Sender: FDA-Public Use
  Company Number: PHEH2013US002154

PATIENT
  Sex: Male

DRUGS (1)
  1. AFINITOR (RAD) UNKNOWN [Suspect]
     Indication: RENAL CANCER
     Dosage: UNK, UNK, UNK, ORAL
     Route: 048
     Dates: start: 20120829

REACTIONS (1)
  - Drug ineffective [None]
